FAERS Safety Report 5215851-3 (Version None)
Quarter: 2007Q1

REPORT INFORMATION
  Report Type: 
  Country: None (occurrence: None)
  Receive Date: 20070123
  Receipt Date: 20070115
  Transmission Date: 20070707
  Serious: Yes (Other)
  Sender: FDA-Public Use
  Company Number: JP-JPN-A200602535

PATIENT
  Sex: Female

DRUGS (2)
  1. PAXIL [Suspect]
     Dosage: 10MG PER DAY
     Route: 048
     Dates: start: 20030101, end: 20060707
  2. LEVOTOMIN [Concomitant]
     Route: 048

REACTIONS (3)
  - HYPOMANIA [None]
  - LOGORRHOEA [None]
  - MOOD ALTERED [None]
